FAERS Safety Report 25876910 (Version 4)
Quarter: 2025Q4

REPORT INFORMATION
  Report Type: Spontaneous
  Country: JP (occurrence: JP)
  Receive Date: 20251003
  Receipt Date: 20251103
  Transmission Date: 20260118
  Serious: Yes (Other)
  Sender: ALEXION PHARMACEUTICALS
  Company Number: JP-ASTRAZENECA-202509JPN026900JP

PATIENT
  Age: 43 Year
  Sex: Female

DRUGS (2)
  1. TEZSPIRE [Suspect]
     Active Substance: TEZEPELUMAB-EKKO
     Route: 065
  2. TEZSPIRE [Suspect]
     Active Substance: TEZEPELUMAB-EKKO

REACTIONS (7)
  - Steroid withdrawal syndrome [Unknown]
  - Adrenal insufficiency [Unknown]
  - Nasopharyngitis [Unknown]
  - Physical deconditioning [Unknown]
  - Asthma [Unknown]
  - Malaise [Unknown]
  - Fatigue [Unknown]
